FAERS Safety Report 23622990 (Version 3)
Quarter: 2024Q2

REPORT INFORMATION
  Report Type: Spontaneous
  Country: US (occurrence: US)
  Receive Date: 20240312
  Receipt Date: 20240531
  Transmission Date: 20240716
  Serious: Yes (Hospitalization, Other)
  Sender: FDA-Public Use
  Company Number: US-BRISTOL-MYERS SQUIBB COMPANY-2024-036497

PATIENT
  Age: 17 Year
  Sex: Male
  Weight: 67.3 kg

DRUGS (5)
  1. REBLOZYL [Suspect]
     Active Substance: LUSPATERCEPT-AAMT
     Indication: Thalassaemia beta
     Route: 058
     Dates: start: 20240221, end: 20240302
  2. JADENU SPRINKLE [Concomitant]
     Indication: Overchelation
     Route: 048
  3. FOLIC ACID [Concomitant]
     Active Substance: FOLIC ACID
     Indication: Overchelation
  4. OMEPRAZOLE [Concomitant]
     Active Substance: DONEPEZIL HYDROCHLORIDE\OMEPRAZOLE\OMEPRAZOLE MAGNESIUM
     Indication: Overchelation
  5. VITAMIN D NOS [Concomitant]
     Active Substance: CHOLECALCIFEROL\ERGOCALCIFEROL
     Indication: Overchelation

REACTIONS (4)
  - Delirium [Unknown]
  - Fatigue [Unknown]
  - Headache [Unknown]
  - Schizophreniform disorder [Unknown]

NARRATIVE: CASE EVENT DATE: 20240221
